FAERS Safety Report 18311723 (Version 1)
Quarter: 2020Q3

REPORT INFORMATION
  Report Type: Report from Study
  Country: US (occurrence: US)
  Receive Date: 20200925
  Receipt Date: 20200925
  Transmission Date: 20201103
  Serious: Yes (Other)
  Sender: FDA-Public Use
  Company Number: US-MYLANLABS-2020M1081130

PATIENT
  Sex: Female

DRUGS (2)
  1. BICALUTAMIDE. [Suspect]
     Active Substance: BICALUTAMIDE
     Indication: BREAST CANCER METASTATIC
     Dosage: 150 MILLIGRAM, QD(ADMINISTERED FOR 3 WEEKS AND THEN 1 WEEK OFF
     Route: 065
  2. PALBOCICLIB [Suspect]
     Active Substance: PALBOCICLIB
     Indication: BREAST CANCER METASTATIC
     Dosage: 125 MILLIGRAM, QD(ADMINISTERED FOR 3 WEEKS AND THEN 1 WEEK OFF
     Route: 065

REACTIONS (1)
  - Febrile neutropenia [Unknown]
